FAERS Safety Report 21364947 (Version 6)
Quarter: 2022Q4

REPORT INFORMATION
  Report Type: Spontaneous
  Country: GB (occurrence: GB)
  Receive Date: 20220922
  Receipt Date: 20221206
  Transmission Date: 20230113
  Serious: Yes (Hospitalization, Other)
  Sender: FDA-Public Use
  Company Number: GB-MYLANLABS-2022M1095843

PATIENT
  Age: 54 Year
  Sex: Male
  Weight: 60.2 kg

DRUGS (3)
  1. CLOZARIL [Suspect]
     Active Substance: CLOZAPINE
     Indication: Schizophrenia
     Dosage: 900 MILLIGRAM
     Route: 048
     Dates: start: 20010701, end: 202211
  2. SULPIRIDE [Concomitant]
     Active Substance: SULPIRIDE
     Dosage: 200 MILLIGRAM, BID
     Route: 048
  3. MIRTAZAPINE [Concomitant]
     Active Substance: MIRTAZAPINE
     Dosage: 30 MILLIGRAM
     Route: 048
     Dates: start: 202201

REACTIONS (14)
  - Hospitalisation [Unknown]
  - Haemoglobin decreased [Unknown]
  - Haematological malignancy [Unknown]
  - Pancytopenia [Unknown]
  - Lymphoma [Unknown]
  - Mental disorder [Unknown]
  - Eosinophil count decreased [Not Recovered/Not Resolved]
  - White blood cell count decreased [Recovered/Resolved]
  - Neutrophil count decreased [Recovered/Resolved]
  - Red blood cell count decreased [Recovering/Resolving]
  - Haematocrit decreased [Recovering/Resolving]
  - Mean cell haemoglobin decreased [Recovering/Resolving]
  - Weight decreased [Unknown]
  - Lymphadenopathy [Unknown]

NARRATIVE: CASE EVENT DATE: 20220921
